FAERS Safety Report 9814434 (Version 2)
Quarter: 2014Q1

REPORT INFORMATION
  Report Type: Spontaneous
  Country: US (occurrence: US)
  Receive Date: 20140113
  Receipt Date: 20140113
  Transmission Date: 20141002
  Serious: Yes (Other)
  Sender: FDA-Public Use
  Company Number: US-FRI-1000050470

PATIENT
  Age: 58 Year
  Sex: Female

DRUGS (5)
  1. LINZESS [Suspect]
     Indication: IRRITABLE BOWEL SYNDROME
     Dosage: 145 MCG
     Route: 048
     Dates: start: 20131018, end: 201311
  2. LINZESS [Suspect]
     Indication: IRRITABLE BOWEL SYNDROME
     Dosage: 290 MCG
     Route: 048
     Dates: start: 201311, end: 20140101
  3. HYDROCHLOROTHIAZIDE [Concomitant]
     Indication: HYPERTENSION
  4. LEVOXYL [Concomitant]
     Indication: HYPOTHYROIDISM
  5. ESTROGEN [Concomitant]

REACTIONS (6)
  - Haemorrhoids [Not Recovered/Not Resolved]
  - Thirst [Recovered/Resolved]
  - Dry mouth [Recovered/Resolved]
  - Migraine [Recovered/Resolved]
  - Decreased appetite [Recovered/Resolved]
  - Drug ineffective [Recovered/Resolved]
